FAERS Safety Report 19067168 (Version 1)
Quarter: 2021Q1

REPORT INFORMATION
  Report Type: Spontaneous
  Country: JP (occurrence: JP)
  Receive Date: 20210329
  Receipt Date: 20210329
  Transmission Date: 20210420
  Serious: Yes (Other)
  Sender: FDA-Public Use
  Company Number: JP-ADVANZ PHARMA-GSH201810-003783

PATIENT

DRUGS (4)
  1. PREDNISOLONE. [Concomitant]
     Active Substance: PREDNISOLONE
     Indication: CUTANEOUS LUPUS ERYTHEMATOSUS
  2. HYDROXYCHLOROQUINE SULFATE (AUTHORIZED GENERIC),PLAQUENIL [Suspect]
     Active Substance: HYDROXYCHLOROQUINE SULFATE
     Indication: MIXED CONNECTIVE TISSUE DISEASE
     Dosage: UNK, FILM?COATED TABLET (PLAQUENIL), DISCONTINUED 2 WEEKS AFTER ORAL ADMINISTRATION
     Route: 048
  3. HYDROXYCHLOROQUINE SULFATE (AUTHORIZED GENERIC),PLAQUENIL [Suspect]
     Active Substance: HYDROXYCHLOROQUINE SULFATE
     Indication: CUTANEOUS LUPUS ERYTHEMATOSUS
  4. PREDNISOLONE. [Concomitant]
     Active Substance: PREDNISOLONE
     Indication: MIXED CONNECTIVE TISSUE DISEASE
     Dosage: UNK

REACTIONS (1)
  - Erythema multiforme [Recovering/Resolving]
